FAERS Safety Report 4315728-1 (Version None)
Quarter: 2004Q1

REPORT INFORMATION
  Report Type: 
  Country: None (occurrence: None)
  Receive Date: 20040309
  Receipt Date: 20040220
  Transmission Date: 20041129
  Serious: Yes (Hospitalization)
  Sender: FDA-Public Use
  Company Number: 701468

PATIENT
  Age: 58 Year
  Sex: Female
  Weight: 83.0083 kg

DRUGS (8)
  1. AMEVIVE [Suspect]
     Indication: PSORIASIS
     Dosage: 15 MG QW IM
     Route: 030
     Dates: start: 20031101
  2. AMEVIVE [Suspect]
     Indication: PSORIASIS
     Dosage: 15 MG QW IM
     Route: 030
     Dates: start: 20040101
  3. ULTRAVIST 150 [Concomitant]
  4. CENTRU SILVER [Concomitant]
  5. VITAMIN C [Concomitant]
  6. VITAMIN E [Concomitant]
  7. VITAMIN B COMPLEX CAP [Concomitant]
  8. CALCIUM [Concomitant]

REACTIONS (3)
  - CELLULITIS [None]
  - DIABETES MELLITUS NON-INSULIN-DEPENDENT [None]
  - LYMPHANGITIS [None]
